FAERS Safety Report 21957369 (Version 3)
Quarter: 2023Q1

REPORT INFORMATION
  Report Type: Spontaneous
  Country: US (occurrence: US)
  Receive Date: 20230206
  Receipt Date: 20230308
  Transmission Date: 20230417
  Serious: Yes (Hospitalization, Other)
  Sender: FDA-Public Use
  Company Number: US-PFIZER INC-PV202300022017

PATIENT
  Age: 58 Year
  Sex: Female

DRUGS (1)
  1. IBRANCE [Suspect]
     Active Substance: PALBOCICLIB
     Dosage: UNK
     Dates: start: 20230112

REACTIONS (5)
  - Haemoglobin decreased [Unknown]
  - Dyspnoea [Unknown]
  - Pneumonia [Unknown]
  - Dizziness [Unknown]
  - Diarrhoea [Recovered/Resolved]
